FAERS Safety Report 7074397-0 (Version None)
Quarter: 2010Q4

REPORT INFORMATION
  Report Type: 
  Country: None (occurrence: None)
  Receive Date: 20101029
  Receipt Date: 20101022
  Transmission Date: 20110411
  Serious: Yes (Hospitalization)
  Sender: FDA-Public Use
  Company Number: GXKR2010JP12005

PATIENT
  Age: 73 Year
  Sex: Male

DRUGS (3)
  1. FLUOROURACIL [Suspect]
     Indication: COLON CANCER
     Route: 065
  2. LEUCOVORIN CALCIUM (NGX) [Suspect]
     Indication: COLON CANCER METASTATIC
     Route: 065
  3. OXALIPLATIN (NGX) [Suspect]
     Indication: COLON CANCER METASTATIC
     Dosage: 6 CYCLES
     Route: 065

REACTIONS (3)
  - COUGH [None]
  - DYSPNOEA [None]
  - INTERSTITIAL LUNG DISEASE [None]
